FAERS Safety Report 15871062 (Version 1)
Quarter: 2019Q1

REPORT INFORMATION
  Report Type: Report from Study
  Country: CN (occurrence: CN)
  Receive Date: 20190126
  Receipt Date: 20190126
  Transmission Date: 20190417
  Serious: Yes (Hospitalization)
  Sender: FDA-Public Use
  Company Number: CN-AMGEN-CHNCT2019010833

PATIENT
  Age: 65 Year
  Sex: Female

DRUGS (5)
  1. CALCITRIOL. [Concomitant]
     Active Substance: CALCITRIOL
     Indication: HYPERPARATHYROIDISM SECONDARY
     Dosage: 0.5 MUG, 3 TIMES/WK
     Route: 048
     Dates: start: 2014
  2. EPO [Concomitant]
     Active Substance: ERYTHROPOIETIN
     Indication: NEPHROGENIC ANAEMIA
     Dosage: 6000 IU, QWK
     Route: 042
     Dates: start: 201805
  3. FOLIC ACID ALMUS [Concomitant]
     Active Substance: FOLIC ACID
     Indication: NEPHROGENIC ANAEMIA
     Dosage: 10 MG, TID
     Route: 048
     Dates: start: 1986
  4. CALCIUM ACETATE HYDROUS [Concomitant]
     Indication: HYPOCALCAEMIA
     Dosage: 0.667 G, TID
     Route: 048
     Dates: start: 2014
  5. CINACALCET HCL [Suspect]
     Active Substance: CINACALCET HYDROCHLORIDE
     Indication: HYPERPARATHYROIDISM SECONDARY
     Dosage: 25 MG, UNK
     Route: 048
     Dates: start: 20180830

REACTIONS (1)
  - Vascular procedure complication [Recovered/Resolved]

NARRATIVE: CASE EVENT DATE: 20190112
